FAERS Safety Report 6005464-8 (Version None)
Quarter: 2008Q4

REPORT INFORMATION
  Report Type: 
  Country: None (occurrence: None)
  Receive Date: 20081217
  Receipt Date: 20081124
  Transmission Date: 20090506
  Serious: Yes (Other)
  Sender: FDA-Public Use
  Company Number: GB-B.I. PHARMACEUTICALS,INC./RIDGEFIELD-2008-BP-18691YA

PATIENT
  Age: 76 Year
  Sex: Male

DRUGS (9)
  1. TAMSULOSIN HCL [Suspect]
  2. OMEPRAZOLE [Suspect]
     Dosage: 20MG
  3. AMLODIPINE [Suspect]
     Dosage: 5MG
  4. RAMIPRIL [Suspect]
     Dosage: 2.5MG
  5. SERETIDE [Suspect]
     Indication: ASTHMA
     Dates: start: 20051208
  6. SIMVASTATIN [Suspect]
     Dosage: 20MG
  7. THEOPHYLLINE [Suspect]
     Dosage: 300MG
  8. TIOTROPIUM BROMIDE [Suspect]
  9. VENTOLIN [Suspect]
     Indication: ASTHMA

REACTIONS (4)
  - ASTHMA [None]
  - DYSPNOEA [None]
  - MEMORY IMPAIRMENT [None]
  - TRANSIENT ISCHAEMIC ATTACK [None]
